FAERS Safety Report 11576385 (Version 1)
Quarter: 2015Q3

REPORT INFORMATION
  Report Type: Spontaneous
  Country: US (occurrence: US)
  Receive Date: 20150930
  Receipt Date: 20150930
  Transmission Date: 20151125
  Serious: Yes (Hospitalization)
  Sender: FDA-Public Use
  Company Number: US-ASTRAZENECA-2015SE92627

PATIENT
  Age: 79 Year
  Sex: Female
  Weight: 66.2 kg

DRUGS (2)
  1. OLAPARIB [Suspect]
     Active Substance: OLAPARIB
     Indication: OVARIAN CANCER
     Dosage: 8 TABLETS IN THE MORNING AND 8 TABLETS IN THE EVENING
     Route: 048
     Dates: start: 2015, end: 2015
  2. ARIMIDEX [Suspect]
     Active Substance: ANASTROZOLE
     Indication: BREAST CANCER
     Route: 048
     Dates: start: 2012

REACTIONS (6)
  - Adverse drug reaction [Unknown]
  - Off label use [Recovered/Resolved]
  - Decreased appetite [Unknown]
  - Fall [Unknown]
  - Malaise [Unknown]
  - Dysgeusia [Unknown]

NARRATIVE: CASE EVENT DATE: 2015
